FAERS Safety Report 7096238-8 (Version None)
Quarter: 2010Q4

REPORT INFORMATION
  Report Type: 
  Country: None (occurrence: None)
  Receive Date: 20101103
  Receipt Date: 20101025
  Transmission Date: 20110411
  Serious: Yes (Disabling)
  Sender: FDA-Public Use
  Company Number: 2010MA002782

PATIENT
  Age: 79 Year
  Sex: Male

DRUGS (7)
  1. GABAPENTIN [Suspect]
     Indication: HERPES ZOSTER
     Dosage: 300 MG; PO
     Route: 048
     Dates: start: 20080820, end: 20100616
  2. GABAPENTIN [Suspect]
     Indication: POST HERPETIC NEURALGIA
     Dosage: 300 MG; PO
     Route: 048
     Dates: start: 20080820, end: 20100616
  3. CAPSAICIN CREAM [Concomitant]
  4. OTC (AMALLC) [Concomitant]
  5. BISOPROLOL [Concomitant]
  6. AMLODIPINE [Concomitant]
  7. TENORETIC 100 [Concomitant]

REACTIONS (18)
  - ADVERSE EVENT [None]
  - APATHY [None]
  - ASTHENIA [None]
  - DECREASED INTEREST [None]
  - DEPRESSION [None]
  - DISTURBANCE IN ATTENTION [None]
  - EXERCISE TOLERANCE DECREASED [None]
  - FATIGUE [None]
  - FEELING ABNORMAL [None]
  - HYPOAESTHESIA [None]
  - MALAISE [None]
  - MUSCLE TWITCHING [None]
  - NIGHT SWEATS [None]
  - PAIN [None]
  - PAIN IN EXTREMITY [None]
  - PARAESTHESIA [None]
  - SLEEP DISORDER [None]
  - WITHDRAWAL SYNDROME [None]
